FAERS Safety Report 8281980-3 (Version None)
Quarter: 2012Q2

REPORT INFORMATION
  Report Type: 
  Country: None (occurrence: None)
  Receive Date: 20120410
  Receipt Date: 20111202
  Transmission Date: 20120825
  Serious: Yes (Life-Threatening, Hospitalization)
  Sender: FDA-Public Use
  Company Number: 20110848

PATIENT
  Age: 76 Year
  Sex: Female

DRUGS (1)
  1. VENOFER [Suspect]
     Dosage: ONCE INTRAVENOUS DRIP
     Route: 041
     Dates: start: 20111201

REACTIONS (8)
  - DIARRHOEA [None]
  - COUGH [None]
  - PAIN IN EXTREMITY [None]
  - VAGINAL HAEMORRHAGE [None]
  - BACK PAIN [None]
  - DYSPNOEA [None]
  - BURNING SENSATION [None]
  - SENSATION OF FOREIGN BODY [None]
